FAERS Safety Report 7353913-5 (Version None)
Quarter: 2011Q1

REPORT INFORMATION
  Report Type: 
  Country: None (occurrence: None)
  Receive Date: 20110315
  Receipt Date: 20110301
  Transmission Date: 20110831
  Serious: Yes (Other)
  Sender: FDA-Public Use
  Company Number: PHHY2011NL17019

PATIENT
  Sex: Female

DRUGS (6)
  1. MICARDIS [Concomitant]
  2. ANTIHYPERTENSIVE DRUGS [Concomitant]
  3. SOTALOL HYDROCHLORIDE [Concomitant]
  4. ACLASTA [Suspect]
     Dosage: 5 MG/100ML
     Dates: start: 20100226
  5. ACLASTA [Suspect]
     Dosage: 5 MG/100ML
     Dates: start: 20110301
  6. DIURETICS [Concomitant]

REACTIONS (2)
  - THORACIC VERTEBRAL FRACTURE [None]
  - BACK PAIN [None]
